FAERS Safety Report 7978236-2 (Version None)
Quarter: 2011Q4

REPORT INFORMATION
  Report Type: 
  Country: None (occurrence: None)
  Receive Date: 20111214
  Receipt Date: 20111207
  Transmission Date: 20120403
  Serious: Yes (Other)
  Sender: FDA-Public Use
  Company Number: US-PFIZER INC-2011299940

PATIENT

DRUGS (7)
  1. MAXZIDE [Suspect]
  2. CYMBALTA [Suspect]
  3. ALPRAZOLAM [Suspect]
  4. METFORMIN HCL [Suspect]
  5. TRAZODONE HCL [Suspect]
  6. LISINOPRIL [Suspect]
  7. PRAVASTATIN [Suspect]

REACTIONS (1)
  - NEUROPATHY PERIPHERAL [None]
